FAERS Safety Report 12235483 (Version 1)
Quarter: 2016Q2

REPORT INFORMATION
  Report Type: Report from Study
  Country: PK (occurrence: PK)
  Receive Date: 20160404
  Receipt Date: 20160404
  Transmission Date: 20160815
  Serious: Yes (Death)
  Sender: FDA-Public Use
  Company Number: PHHY2015PK054520

PATIENT
  Sex: Male

DRUGS (1)
  1. TASIGNA [Suspect]
     Active Substance: NILOTINIB
     Indication: CHRONIC MYELOID LEUKAEMIA
     Dosage: 600 MG, UNK
     Route: 048
     Dates: start: 20150218

REACTIONS (11)
  - Respiratory failure [Fatal]
  - Respiratory rate increased [Unknown]
  - Fatigue [Unknown]
  - White blood cell count decreased [Fatal]
  - Oedema peripheral [Unknown]
  - Arthralgia [Unknown]
  - Dyspnoea [Fatal]
  - Malaise [Unknown]
  - Haemoglobin decreased [Fatal]
  - Pleural effusion [Unknown]
  - Eye haemorrhage [Fatal]
